FAERS Safety Report 15467421 (Version 1)
Quarter: 2018Q4

REPORT INFORMATION
  Report Type: Spontaneous
  Country: IE (occurrence: IE)
  Receive Date: 20181005
  Receipt Date: 20181005
  Transmission Date: 20190204
  Serious: Yes (Hospitalization)
  Sender: FDA-Public Use
  Company Number: IE-TEVA-2018-IE-960963

PATIENT
  Age: 45 Year
  Sex: Female

DRUGS (11)
  1. FENTANYL (GENERIC) [Concomitant]
     Route: 065
  2. LACTULOSE (GENERIC) [Concomitant]
     Route: 065
  3. CIPROFLOXACIN (GENERIC) [Suspect]
     Active Substance: CIPROFLOXACIN
     Indication: INFECTION
     Route: 065
  4. PREDNISOLONE (GENERIC) [Concomitant]
     Route: 065
  5. ALPRAZOLAM (G) [Concomitant]
     Route: 065
  6. MEROPENEM (G) [Concomitant]
     Route: 065
  7. THIAMINE (GENERIC) [Concomitant]
     Route: 065
  8. OXYCODONE (G) [Concomitant]
     Route: 065
  9. VANCOMYCIN (G) [Suspect]
     Active Substance: VANCOMYCIN
     Indication: INFECTION
  10. CEFEPIME [Suspect]
     Active Substance: CEFEPIME HYDROCHLORIDE
     Indication: INFECTION
     Route: 065
  11. ENOXAPARIN (GENERIC) [Concomitant]
     Active Substance: ENOXAPARIN
     Route: 065

REACTIONS (2)
  - Acute kidney injury [Not Recovered/Not Resolved]
  - Toxic epidermal necrolysis [Not Recovered/Not Resolved]

NARRATIVE: CASE EVENT DATE: 20180827
